FAERS Safety Report 4344207-0 (Version None)
Quarter: 2004Q2

REPORT INFORMATION
  Report Type: 
  Country: None (occurrence: None)
  Receive Date: 20040419
  Receipt Date: 20040331
  Transmission Date: 20050107
  Serious: Yes (Hospitalization, Other)
  Sender: FDA-Public Use
  Company Number: B0328629A

PATIENT
  Age: 35 Year
  Sex: Female

DRUGS (4)
  1. ZOFRAN [Suspect]
     Indication: HYPEREMESIS GRAVIDARUM
     Dosage: SEE TEXT
  2. METOCLOPRAMIDE [Concomitant]
  3. PROMETHAZINE [Concomitant]
  4. HYDRATION THERAPY [Concomitant]

REACTIONS (5)
  - CAESAREAN SECTION [None]
  - COMPLICATIONS OF MATERNAL EXPOSURE TO THERAPEUTIC DRUGS [None]
  - GESTATIONAL DIABETES [None]
  - MATERNAL DRUGS AFFECTING FOETUS [None]
  - PREMATURE RUPTURE OF MEMBRANES [None]
